FAERS Safety Report 4600514-5 (Version None)
Quarter: 2005Q1

REPORT INFORMATION
  Report Type: 
  Country: None (occurrence: None)
  Receive Date: 20050304
  Receipt Date: 20041218
  Transmission Date: 20050727
  Serious: Yes (Other)
  Sender: FDA-Public Use
  Company Number: 2004232163US

PATIENT
  Sex: Female
  Weight: 63.5036 kg

DRUGS (11)
  1. BEXTRA [Suspect]
     Indication: ARTHRALGIA
     Dosage: 40 MG (20 MG, 1 IN 2 D), ORAL
     Route: 048
     Dates: start: 20040601, end: 20040830
  2. BEXTRA [Suspect]
     Indication: EPICONDYLITIS
     Dosage: 40 MG (20 MG, 1 IN 2 D), ORAL
     Route: 048
     Dates: start: 20040601, end: 20040830
  3. BEXTRA [Suspect]
     Indication: INFLAMMATION
     Dosage: 40 MG (20 MG, 1 IN 2 D), ORAL
     Route: 048
     Dates: start: 20040601, end: 20040830
  4. BEXTRA [Suspect]
     Indication: OSTEOARTHRITIS
     Dosage: 40 MG (20 MG, 1 IN 2 D), ORAL
     Route: 048
     Dates: start: 20040601, end: 20040830
  5. BEXTRA [Suspect]
     Indication: PAIN
     Dosage: 40 MG (20 MG, 1 IN 2 D), ORAL
     Route: 048
     Dates: start: 20040601, end: 20040830
  6. CELEBREX [Suspect]
     Indication: ARTHRALGIA
     Dosage: 200 MG (200 MG, DAILY), ORAL
     Route: 048
     Dates: start: 19960101
  7. CELEBREX [Suspect]
     Indication: OSTEOARTHRITIS
     Dosage: 200 MG (200 MG, DAILY), ORAL
     Route: 048
     Dates: start: 19960101
  8. CELEBREX [Suspect]
     Indication: PAIN
     Dosage: 200 MG (200 MG, DAILY), ORAL
     Route: 048
     Dates: start: 19960101
  9. LEVETIRACETAM [Suspect]
     Indication: PAIN
     Dates: start: 20040601
  10. TOPIRAMATE [Concomitant]
  11. HYDROXYZINE EMBONATE (HYDROXYZINE EMBONATE) [Concomitant]

REACTIONS (16)
  - ABDOMINAL PAIN UPPER [None]
  - ABNORMAL DREAMS [None]
  - COMPLEX REGIONAL PAIN SYNDROME [None]
  - CONDITION AGGRAVATED [None]
  - CONTUSION [None]
  - DIARRHOEA [None]
  - DIVERTICULUM [None]
  - DRUG INTOLERANCE [None]
  - DRUG TOLERANCE DECREASED [None]
  - EATING DISORDER [None]
  - EPICONDYLITIS [None]
  - FIBROMYALGIA [None]
  - LOCAL SWELLING [None]
  - PARAESTHESIA [None]
  - PERIARTHRITIS [None]
  - WEIGHT INCREASED [None]
